FAERS Safety Report 11591315 (Version 1)
Quarter: 2015Q4

REPORT INFORMATION
  Report Type: Spontaneous
  Country: US (occurrence: US)
  Receive Date: 20151004
  Receipt Date: 20151004
  Transmission Date: 20160304
  Serious: No
  Sender: FDA-Public Use
  Company Number: US-ASTRAZENECA-2015SE94648

PATIENT
  Age: 39 Year
  Sex: Female

DRUGS (1)
  1. PRILOSEC OTC [Suspect]
     Active Substance: OMEPRAZOLE MAGNESIUM
     Indication: DYSPEPSIA
     Dosage: 1 TABLET, 2 /DAY-ONE IN AM AND ONE IN PM
     Route: 048
     Dates: start: 20150915, end: 20150918

REACTIONS (2)
  - Dyspepsia [Recovered/Resolved]
  - Condition aggravated [Recovered/Resolved]
